FAERS Safety Report 4450227-8 (Version None)
Quarter: 2004Q3

REPORT INFORMATION
  Report Type: 
  Country: None (occurrence: None)
  Receive Date: 20040914
  Receipt Date: 20040901
  Transmission Date: 20050211
  Serious: Yes (Hospitalization, Other)
  Sender: FDA-Public Use
  Company Number: PHNU2004DE01863

PATIENT
  Age: 84 Year
  Sex: Female

DRUGS (7)
  1. VISUDYNE [Suspect]
     Indication: MACULAR DEGENERATION
     Dates: start: 20031216, end: 20031216
  2. VISUDYNE [Suspect]
     Indication: MACULAR DEGENERATION
     Dates: start: 20040316, end: 20040316
  3. ASPIRIN [Concomitant]
  4. METHIZOL [Concomitant]
  5. DELIX [Concomitant]
  6. GLADEM [Concomitant]
  7. TOPROL-XL [Concomitant]

REACTIONS (9)
  - CHOROIDAL NEOVASCULARISATION [None]
  - CONDITION AGGRAVATED [None]
  - DISEASE PROGRESSION [None]
  - MACULAR DEGENERATION [None]
  - READING DISORDER [None]
  - RETINAL DEGENERATION [None]
  - RETINAL HAEMORRHAGE [None]
  - VISUAL ACUITY REDUCED [None]
  - VISUAL DISTURBANCE [None]
